FAERS Safety Report 24128546 (Version 1)
Quarter: 2024Q3

REPORT INFORMATION
  Report Type: Spontaneous
  Country: US (occurrence: US)
  Receive Date: 20240723
  Receipt Date: 20240723
  Transmission Date: 20241016
  Serious: No
  Sender: NOVO NORDISK
  Company Number: US-NOVOPROD-1156442

PATIENT
  Age: 40 Year
  Sex: Male

DRUGS (2)
  1. RYBELSUS [Suspect]
     Active Substance: SEMAGLUTIDE
     Indication: Product used for unknown indication
     Dosage: 6 MG, QD(TWO 3MG PILLS)
     Route: 048
     Dates: start: 20231212
  2. RYBELSUS [Suspect]
     Active Substance: SEMAGLUTIDE
     Dosage: 7MG (DOSE INCREASED)
     Route: 048

REACTIONS (4)
  - Skin burning sensation [Recovering/Resolving]
  - Pain of skin [Not Recovered/Not Resolved]
  - Abdominal pain upper [Recovered/Resolved]
  - Wrong technique in product usage process [Unknown]

NARRATIVE: CASE EVENT DATE: 20231212
